FAERS Safety Report 5720530-X (Version None)
Quarter: 2008Q2

REPORT INFORMATION
  Report Type: 
  Country: None (occurrence: None)
  Receive Date: 20080423
  Receipt Date: 20070614
  Transmission Date: 20081010
  Serious: Yes (Hospitalization)
  Sender: FDA-Public Use
  Company Number: WAES 0706USA02511

PATIENT
  Age: 11 Year
  Sex: Female

DRUGS (1)
  1. SINGULAIR [Suspect]
     Dosage: 5 MG/DAILY/PO
     Route: 048
     Dates: start: 20070607, end: 20070612

REACTIONS (1)
  - PANCREATITIS [None]
